FAERS Safety Report 11805972 (Version 3)
Quarter: 2016Q2

REPORT INFORMATION
  Report Type: Spontaneous
  Country: US (occurrence: US)
  Receive Date: 20151207
  Receipt Date: 20160425
  Transmission Date: 20160815
  Serious: Yes (Hospitalization, Other)
  Sender: FDA-Public Use
  Company Number: US-BAYER-2015-481727

PATIENT
  Age: 29 Year
  Sex: Female
  Weight: 72.56 kg

DRUGS (4)
  1. MIRENA [Suspect]
     Active Substance: LEVONORGESTREL
     Indication: CONTRACEPTION
     Dosage: 20 MCG/24HR, CONT
     Route: 015
     Dates: start: 20120207, end: 20140515
  2. MOTRIN [Concomitant]
     Active Substance: IBUPROFEN
  3. DOXYCYCLINE. [Concomitant]
     Active Substance: DOXYCYCLINE
  4. LORTAB [Concomitant]
     Active Substance: ACETAMINOPHEN\HYDROCODONE BITARTRATE

REACTIONS (19)
  - Migraine [None]
  - Anaemia [None]
  - Abdominal adhesions [None]
  - Depression [None]
  - Uterine perforation [None]
  - Genital haemorrhage [None]
  - Abdominal pain [None]
  - Fatigue [None]
  - Pelvic pain [None]
  - Anxiety [None]
  - Scar [None]
  - Alopecia [None]
  - Marital problem [None]
  - Weight increased [None]
  - Infertility female [None]
  - Cyst [None]
  - Nausea [None]
  - Polymenorrhoea [None]
  - Abscess [None]

NARRATIVE: CASE EVENT DATE: 201207
